FAERS Safety Report 10489922 (Version 1)
Quarter: 2014Q4

REPORT INFORMATION
  Report Type: Report from Study
  Country: VE (occurrence: VE)
  Receive Date: 20141002
  Receipt Date: 20141002
  Transmission Date: 20150528
  Serious: Yes (Death)
  Sender: FDA-Public Use
  Company Number: PHHY2014VE129039

PATIENT
  Sex: Male

DRUGS (1)
  1. EXJADE [Suspect]
     Active Substance: DEFERASIROX
     Indication: IRON OVERLOAD
     Dosage: DAILY
     Route: 048

REACTIONS (3)
  - Cerebrovascular accident [Fatal]
  - Respiratory arrest [Fatal]
  - Trigeminal nerve disorder [Fatal]
